FAERS Safety Report 6609088-0 (Version None)
Quarter: 2010Q1

REPORT INFORMATION
  Report Type: 
  Country: None (occurrence: None)
  Receive Date: 20100225
  Receipt Date: 20100225
  Transmission Date: 20100710
  Serious: Yes (Hospitalization)
  Sender: FDA-Public Use
  Company Number: None

PATIENT
  Sex: Male
  Weight: 97 kg

DRUGS (4)
  1. MERCAPTOPURINE [Suspect]
     Dosage: 1800 MG
  2. METHOTREXATE [Suspect]
     Dosage: 15 MG
  3. VINCRISTINE SULFATE [Suspect]
     Dosage: 1 MG
  4. DEXAMETHASONE [Suspect]
     Dosage: 60 MG

REACTIONS (2)
  - LUNG INFILTRATION [None]
  - PNEUMONIA FUNGAL [None]
